FAERS Safety Report 9947231 (Version 1)
Quarter: 2014Q1

REPORT INFORMATION
  Report Type: Report from Study
  Country: US (occurrence: US)
  Receive Date: 20140303
  Receipt Date: 20140303
  Transmission Date: 20141002
  Serious: No
  Sender: FDA-Public Use
  Company Number: US-ABBVIE-13P-163-1064285-00

PATIENT
  Age: 54 Year
  Sex: Female

DRUGS (14)
  1. HUMIRA [Suspect]
     Indication: ANKYLOSING SPONDYLITIS
     Dates: start: 20130227
  2. RITALIN [Concomitant]
     Indication: SLEEP DISORDER
  3. CARDIZEM CD [Concomitant]
     Indication: BLOOD PRESSURE
  4. CARDURA [Concomitant]
     Indication: BLOOD PRESSURE
  5. MAXIDEX [Concomitant]
     Indication: BLOOD PRESSURE
     Dosage: 37.5/25
  6. KLOR-CON [Concomitant]
     Indication: PRODUCT USED FOR UNKNOWN INDICATION
  7. CELEXA [Concomitant]
     Indication: DEPRESSION
  8. HYDROCODONE [Concomitant]
     Indication: PAIN
     Dosage: 5/500
  9. REQUIP [Concomitant]
     Indication: RESTLESS LEGS SYNDROME
  10. METFORMIN [Concomitant]
     Indication: DIABETES MELLITUS
  11. GLIPIZIDE [Concomitant]
     Indication: DIABETES MELLITUS
  12. NEURONTIN [Concomitant]
     Indication: NEUROPATHY PERIPHERAL
  13. NOVOLOG MIX [Concomitant]
     Indication: DIABETES MELLITUS
  14. LEVEMIR [Concomitant]
     Indication: DIABETES MELLITUS
     Dosage: 55 UNITS

REACTIONS (3)
  - Device malfunction [Unknown]
  - Drug dose omission [Unknown]
  - Injection site pain [Unknown]
